FAERS Safety Report 9630294 (Version 3)
Quarter: 2013Q4

REPORT INFORMATION
  Report Type: Spontaneous
  Country: FR (occurrence: FR)
  Receive Date: 20131017
  Receipt Date: 20131226
  Transmission Date: 20140711
  Serious: Yes (Hospitalization)
  Sender: FDA-Public Use
  Company Number: FR-ROCHE-1290693

PATIENT
  Age: 78 Year
  Sex: Female

DRUGS (13)
  1. AVASTIN [Suspect]
     Indication: RECTOSIGMOID CANCER
     Route: 065
     Dates: end: 20130822
  2. AVASTIN [Suspect]
     Indication: METASTASES TO LIVER
     Route: 041
     Dates: start: 20131003, end: 20131003
  3. AVASTIN [Suspect]
     Indication: METASTASES TO LUNG
  4. KABIVEN [Concomitant]
  5. OXYCONTIN [Concomitant]
  6. LYRICA [Concomitant]
  7. PLITICAN [Concomitant]
  8. ZOPHREN [Concomitant]
  9. PERFALGAN [Concomitant]
  10. IRINOTECAN [Concomitant]
     Route: 065
  11. 5-FLUOROURACIL [Concomitant]
     Route: 065
     Dates: start: 201202
  12. FOLINIC ACID [Concomitant]
     Route: 065
  13. OXALIPLATIN [Concomitant]
     Route: 065

REACTIONS (1)
  - Haemolytic anaemia [Recovered/Resolved]
